FAERS Safety Report 8822690 (Version 1)
Quarter: 2012Q4

REPORT INFORMATION
  Report Type: 
  Country: NL (occurrence: NL)
  Receive Date: 20121003
  Receipt Date: 20121003
  Transmission Date: 20130627
  Serious: Yes (Other)
  Sender: FDA-Public Use
  Company Number: NL-BRISTOL-MYERS SQUIBB COMPANY-16996324

PATIENT
  Age: 52 Year
  Sex: Female

DRUGS (1)
  1. ABILIFY [Suspect]
     Indication: PSYCHOTIC DISORDER
     Dosage: Interrupted on 29-08-2012 and restarted
     Dates: start: 20060517

REACTIONS (4)
  - Diarrhoea [Unknown]
  - Rhinorrhoea [Unknown]
  - Gait disturbance [Unknown]
  - Liver function test abnormal [Unknown]
